FAERS Safety Report 5534956-0 (Version None)
Quarter: 2007Q4

REPORT INFORMATION
  Report Type: 
  Country: None (occurrence: None)
  Receive Date: 20071205
  Receipt Date: 20060928
  Transmission Date: 20080405
  Serious: Yes (Death)
  Sender: FDA-Public Use
  Company Number: FR-GENENTECH-252311

PATIENT
  Age: 65 Year
  Sex: Male

DRUGS (4)
  1. AVASTIN [Suspect]
     Indication: COLON CANCER METASTATIC
     Dosage: UNK, UNKNOWN
     Route: 065
     Dates: end: 20060215
  2. FLUOROURACIL [Concomitant]
     Indication: COLON CANCER METASTATIC
  3. FOLINIC ACID [Concomitant]
     Indication: COLON CANCER METASTATIC
  4. IRINOTECAN HCL [Concomitant]
     Indication: COLON CANCER METASTATIC

REACTIONS (2)
  - DEATH [None]
  - HEPATIC NECROSIS [None]
